FAERS Safety Report 9840190 (Version 1)
Quarter: 2014Q1

REPORT INFORMATION
  Report Type: Spontaneous
  Country: US (occurrence: None)
  Receive Date: 20140121
  Receipt Date: 20140121
  Transmission Date: 20141002
  Serious: Yes (Hospitalization)
  Sender: FDA-Public Use
  Company Number: None

PATIENT
  Age: 86 Year
  Sex: Male
  Weight: 71.4 kg

DRUGS (1)
  1. WARFARIN [Suspect]
     Indication: ATRIAL FIBRILLATION
     Route: 048
     Dates: end: 20140114

REACTIONS (8)
  - Rectal haemorrhage [None]
  - International normalised ratio increased [None]
  - Intestinal polyp [None]
  - Diverticulum [None]
  - Anaemia [None]
  - Gastric haemorrhage [None]
  - Haematocrit decreased [None]
  - Haemoglobin decreased [None]
